FAERS Safety Report 4961668-4 (Version None)
Quarter: 2006Q2

REPORT INFORMATION
  Report Type: 
  Country: None (occurrence: None)
  Receive Date: 20060404
  Receipt Date: 20060323
  Transmission Date: 20061013
  Serious: Yes (Hospitalization)
  Sender: FDA-Public Use
  Company Number: JP-JNJFOC-20060303029

PATIENT
  Sex: Female
  Weight: 55 kg

DRUGS (13)
  1. REMICADE [Suspect]
     Route: 042
  2. REMICADE [Suspect]
     Route: 042
  3. REMICADE [Suspect]
     Route: 042
  4. REMICADE [Suspect]
     Indication: RHEUMATOID ARTHRITIS
     Route: 042
  5. RHEUMATREX [Suspect]
     Route: 048
  6. RHEUMATREX [Suspect]
     Route: 048
  7. RHEUMATREX [Suspect]
     Route: 048
  8. RHEUMATREX [Suspect]
     Route: 048
  9. RHEUMATREX [Suspect]
     Route: 048
  10. RHEUMATREX [Suspect]
     Indication: RHEUMATOID ARTHRITIS
     Route: 048
  11. NEOMALLERMIN-TR [Concomitant]
     Indication: PROPHYLAXIS
     Route: 048
  12. CALONAL [Concomitant]
     Indication: PROPHYLAXIS
     Route: 048
  13. VOLTAREN [Concomitant]
     Indication: BACK PAIN
     Route: 054

REACTIONS (5)
  - BACK PAIN [None]
  - BACTERIAL INFECTION [None]
  - INTERVERTEBRAL DISC DISORDER [None]
  - INTERVERTEBRAL DISCITIS [None]
  - SPINAL DISORDER [None]
